FAERS Safety Report 7318336-3 (Version None)
Quarter: 2011Q1

REPORT INFORMATION
  Report Type: 
  Country: None (occurrence: None)
  Receive Date: 20110218
  Receipt Date: 20110218
  Transmission Date: 20110831
  Serious: Yes (Hospitalization)
  Sender: FDA-Public Use
  Company Number: None

PATIENT
  Age: 69 Year
  Sex: Female
  Weight: 60 kg

DRUGS (4)
  1. POTASSIUM CHLORIDE [Concomitant]
  2. MINOCIN [Concomitant]
  3. TARCEVA [Suspect]
     Indication: NON-SMALL CELL LUNG CANCER METASTATIC
     Dosage: 100MG DAILY PO CHRONIC
     Route: 048
  4. XANAX [Concomitant]

REACTIONS (3)
  - THROMBOCYTOPENIA [None]
  - APHASIA [None]
  - MENINGEAL DISORDER [None]
